FAERS Safety Report 13713370 (Version 1)
Quarter: 2017Q3

REPORT INFORMATION
  Report Type: Spontaneous
  Country: US (occurrence: US)
  Receive Date: 20170704
  Receipt Date: 20170704
  Transmission Date: 20171127
  Serious: No
  Sender: FDA-Public Use
  Company Number: US-ELI_LILLY_AND_COMPANY-US201706013663

PATIENT
  Sex: Female

DRUGS (1)
  1. HUMULIN R [Suspect]
     Active Substance: INSULIN HUMAN
     Indication: TYPE 2 DIABETES MELLITUS
     Dosage: 40-45 U, TID
     Route: 058
     Dates: start: 201705

REACTIONS (2)
  - Wrong technique in product usage process [Not Recovered/Not Resolved]
  - Stomatitis [Not Recovered/Not Resolved]
